FAERS Safety Report 16804012 (Version 1)
Quarter: 2019Q3

REPORT INFORMATION
  Report Type: Spontaneous
  Country: CA (occurrence: CA)
  Receive Date: 20190913
  Receipt Date: 20190913
  Transmission Date: 20191005
  Serious: Yes (Other)
  Sender: FDA-Public Use
  Company Number: CA-JNJFOC-20190904774

PATIENT
  Age: 56 Year
  Sex: Female
  Weight: 68 kg

DRUGS (10)
  1. INNOHEP [Concomitant]
     Active Substance: TINZAPARIN SODIUM
     Indication: PRODUCT USED FOR UNKNOWN INDICATION
     Route: 058
  2. KEPPRA [Concomitant]
     Active Substance: LEVETIRACETAM
     Indication: PRODUCT USED FOR UNKNOWN INDICATION
     Route: 065
  3. PROCHLORAZINE [Concomitant]
     Indication: PRODUCT USED FOR UNKNOWN INDICATION
     Route: 065
  4. TEMOZOLOMIDE. [Concomitant]
     Active Substance: TEMOZOLOMIDE
     Indication: PRODUCT USED FOR UNKNOWN INDICATION
     Route: 065
  5. TYLENOL [Suspect]
     Active Substance: ACETAMINOPHEN
     Indication: INFUSION RELATED REACTION
     Route: 065
  6. TYLENOL [Suspect]
     Active Substance: ACETAMINOPHEN
     Indication: BACK PAIN
  7. AVASTIN [Suspect]
     Active Substance: BEVACIZUMAB
     Route: 042
  8. AVASTIN [Suspect]
     Active Substance: BEVACIZUMAB
     Indication: BRAIN NEOPLASM MALIGNANT
     Route: 042
  9. DEXAMETHASONE. [Concomitant]
     Active Substance: DEXAMETHASONE
     Indication: PRODUCT USED FOR UNKNOWN INDICATION
     Route: 065
  10. INSULIN NOVO [Concomitant]
     Active Substance: INSULIN HUMAN
     Indication: PRODUCT USED FOR UNKNOWN INDICATION
     Route: 065

REACTIONS (9)
  - Blood pressure diastolic abnormal [Recovered/Resolved]
  - Oxygen saturation decreased [Recovered/Resolved]
  - Eastern Cooperative Oncology Group performance status improved [Recovered/Resolved]
  - Blood pressure diastolic increased [Recovered/Resolved]
  - Weight decreased [Recovered/Resolved]
  - Thrombosis [Recovered/Resolved]
  - Heart rate increased [Recovered/Resolved]
  - Infusion related reaction [Recovered/Resolved]
  - Vomiting [Recovered/Resolved]
